FAERS Safety Report 8901757 (Version 1)
Quarter: 2012Q4

REPORT INFORMATION
  Report Type: Spontaneous
  Country: US (occurrence: None)
  Receive Date: 20121105
  Receipt Date: 20121105
  Transmission Date: 20130627
  Serious: Yes (Other)
  Sender: FDA-Public Use
  Company Number: 2012P1061226

PATIENT
  Age: 69 Year
  Sex: Female
  Weight: 61.24 kg

DRUGS (3)
  1. DUEXIS [Suspect]
     Indication: FIBROMYALGIA
     Dosage: 1-2 TAB;QD;PO
     Route: 048
     Dates: start: 20120719, end: 201209
  2. DUEXIS [Suspect]
     Indication: FIBROMYALGIA
     Dosage: ;PRN;PO
     Route: 048
     Dates: start: 201209, end: 20121008
  3. VERELAN [Concomitant]

REACTIONS (4)
  - Dyspnoea [None]
  - Palpitations [None]
  - Hypoaesthesia [None]
  - Incorrect dose administered [None]
